FAERS Safety Report 17827493 (Version 2)
Quarter: 2020Q2

REPORT INFORMATION
  Report Type: Spontaneous
  Country: GB (occurrence: GB)
  Receive Date: 20200527
  Receipt Date: 20200612
  Transmission Date: 20200714
  Serious: Yes (Other)
  Sender: FDA-Public Use
  Company Number: GB-TEVA-2020-GB-1240014

PATIENT
  Age: 71 Year
  Sex: Male
  Weight: 79 kg

DRUGS (4)
  1. ATORVASTATIN CALCIUM TRIHYDRATE [Suspect]
     Active Substance: ATORVASTATIN CALCIUM
     Route: 065
  2. CANDESARTAN CILEXETIL. [Suspect]
     Active Substance: CANDESARTAN CILEXETIL
     Route: 065
  3. CLOPIDOGREL [Suspect]
     Active Substance: CLOPIDOGREL BISULFATE
     Indication: TRANSIENT ISCHAEMIC ATTACK
     Dosage: 75 MG
     Route: 048
     Dates: start: 20200304, end: 202005
  4. TEVA UK LANSOPRAZOLE [Concomitant]
     Active Substance: LANSOPRAZOLE

REACTIONS (8)
  - Dizziness [Unknown]
  - Paraesthesia [Unknown]
  - Hypoaesthesia [Unknown]
  - Hypertension [Unknown]
  - Myalgia [Unknown]
  - Chest pain [Recovered/Resolved]
  - Arthralgia [Unknown]
  - Tremor [Unknown]

NARRATIVE: CASE EVENT DATE: 20200326
